FAERS Safety Report 23904729 (Version 2)
Quarter: 2024Q2

REPORT INFORMATION
  Report Type: Spontaneous
  Country: JP (occurrence: JP)
  Receive Date: 20240527
  Receipt Date: 20240607
  Transmission Date: 20240715
  Serious: Yes (Other)
  Sender: FDA-Public Use
  Company Number: JP-TEVA-VS-3201121

PATIENT
  Age: 48 Year
  Sex: Female

DRUGS (4)
  1. PREDNISOLONE [Suspect]
     Active Substance: PREDNISOLONE
     Indication: Dacryoadenitis acquired
     Route: 065
  2. PREDNISOLONE [Suspect]
     Active Substance: PREDNISOLONE
     Indication: Dacryoadenitis acquired
     Route: 065
  3. PREDNISOLONE [Suspect]
     Active Substance: PREDNISOLONE
     Indication: Dacryoadenitis acquired
     Route: 065
  4. TOZINAMERAN [Suspect]
     Active Substance: TOZINAMERAN
     Indication: Immunisation
     Dosage: RECEIVED 2ND DOSE, PFIZER-BIONTECH-COVID-19-VACCINE
     Route: 065

REACTIONS (5)
  - Drug ineffective [Unknown]
  - Cushingoid [Unknown]
  - Dermatitis atopic [Recovering/Resolving]
  - Weight increased [Unknown]
  - Lacrimal gland enlargement [Recovering/Resolving]
